FAERS Safety Report 10070887 (Version 3)
Quarter: 2014Q2

REPORT INFORMATION
  Report Type: Spontaneous
  Country: DE (occurrence: DE)
  Receive Date: 20140410
  Receipt Date: 20140429
  Transmission Date: 20141212
  Serious: Yes (Hospitalization)
  Sender: FDA-Public Use
  Company Number: DE-SA-2014SA036022

PATIENT
  Sex: Female
  Weight: 68 kg

DRUGS (1)
  1. LEMTRADA [Suspect]
     Indication: MULTIPLE SCLEROSIS
     Route: 042
     Dates: start: 20140113, end: 20140117

REACTIONS (4)
  - Diffuse alveolar damage [Recovering/Resolving]
  - Lung disorder [Recovering/Resolving]
  - Cough [Not Recovered/Not Resolved]
  - Dyspnoea [Recovering/Resolving]
